FAERS Safety Report 9621340 (Version 1)
Quarter: 2013Q4

REPORT INFORMATION
  Report Type: Spontaneous
  Country: US (occurrence: None)
  Receive Date: 20131011
  Receipt Date: 20131011
  Transmission Date: 20140711
  Serious: Yes (Hospitalization)
  Sender: FDA-Public Use
  Company Number: None

PATIENT
  Age: 68 Year
  Sex: Male
  Weight: 60.9 kg

DRUGS (1)
  1. BEVACIZUMAB [Suspect]

REACTIONS (4)
  - Abdominal pain upper [None]
  - Vomiting [None]
  - Diarrhoea [None]
  - Dehydration [None]
